FAERS Safety Report 7128760-X (Version None)
Quarter: 2010Q4

REPORT INFORMATION
  Report Type: 
  Country: None (occurrence: None)
  Receive Date: 20101130
  Receipt Date: 20101119
  Transmission Date: 20110411
  Serious: Yes (Other)
  Sender: FDA-Public Use
  Company Number: FR-JNJFOC-20100302877

PATIENT
  Age: 43 Year
  Sex: Male
  Weight: 82 kg

DRUGS (4)
  1. REMICADE [Suspect]
     Indication: PSORIASIS
     Dosage: 3 INFUSIONS ON UNSPECIFIED DATES
     Route: 042
  2. REMICADE [Suspect]
     Dosage: 4TH INFUSION
     Route: 042
  3. DILTIAZEM [Concomitant]
  4. PRACTAZIN [Concomitant]

REACTIONS (6)
  - ASTHENIA [None]
  - CHEST DISCOMFORT [None]
  - HYPERSENSITIVITY [None]
  - INFUSION RELATED REACTION [None]
  - PRURITUS [None]
  - RESPIRATORY DISORDER [None]
